FAERS Safety Report 8740230 (Version 2)
Quarter: 2013Q4

REPORT INFORMATION
  Report Type: Spontaneous
  Country: US (occurrence: US)
  Receive Date: 20120823
  Receipt Date: 20131101
  Transmission Date: 20140711
  Serious: No
  Sender: FDA-Public Use
  Company Number: US-009507513-1208USA001568

PATIENT
  Age: 56 Year
  Sex: Female

DRUGS (1)
  1. EMEND FOR INJECTION [Suspect]
     Dosage: 150 MG, ONCE
     Route: 042
     Dates: start: 20120802, end: 20120802

REACTIONS (2)
  - Infusion site erythema [Not Recovered/Not Resolved]
  - Infusion related reaction [Not Recovered/Not Resolved]
